FAERS Safety Report 5701190-0 (Version None)
Quarter: 2008Q2

REPORT INFORMATION
  Report Type: 
  Country: None (occurrence: None)
  Receive Date: 20080407
  Receipt Date: 20080401
  Transmission Date: 20081010
  Serious: Yes (Hospitalization)
  Sender: FDA-Public Use
  Company Number: L08-GER-01247-01

PATIENT
  Age: 56 Year
  Sex: Female

DRUGS (1)
  1. CITALOPRAM HYDROBROMIDE [Suspect]
     Dosage: 20 MG QD;PO
     Route: 048

REACTIONS (3)
  - HEPATIC NECROSIS [None]
  - HEPATITIS ACUTE [None]
  - HEPATOMEGALY [None]
